FAERS Safety Report 22352751 (Version 2)
Quarter: 2023Q2

REPORT INFORMATION
  Report Type: Spontaneous
  Country: CA (occurrence: CA)
  Receive Date: 20230523
  Receipt Date: 20230612
  Transmission Date: 20230721
  Serious: Yes (Life-Threatening, Other)
  Sender: FDA-Public Use
  Company Number: CA-CELLTRION INC.-2023CA010653

PATIENT

DRUGS (7)
  1. INFLECTRA [Suspect]
     Active Substance: INFLIXIMAB-DYYB
     Indication: Crohn^s disease
     Dosage: 10 MG/KG
     Route: 064
     Dates: start: 20230202, end: 20230202
  2. INFLECTRA [Suspect]
     Active Substance: INFLIXIMAB-DYYB
     Dosage: 5 MG/KG, INDUCTION WEEK 2, 6 THEN MAINTENANCE EVERY 8 WEEKS
     Route: 064
     Dates: start: 20230216
  3. INFLECTRA [Suspect]
     Active Substance: INFLIXIMAB-DYYB
     Dosage: 5 MG/KG, INDUCTION WEEK 2, 6 THEN MAINTENANCE EVERY 8 WEEKS
     Route: 064
     Dates: start: 20230316
  4. INFLECTRA [Suspect]
     Active Substance: INFLIXIMAB-DYYB
     Dosage: 295MG, INDUCTION WEEK 2, 6 THEN MAINTENANCE EVERY 8 WEEKS
     Route: 064
     Dates: start: 20230511
  5. HUMALOG [Concomitant]
     Active Substance: INSULIN LISPRO
     Dosage: UNK
     Route: 064
  6. PREDNISONE [Concomitant]
     Active Substance: PREDNISONE
     Dosage: UNK
     Route: 064
  7. SYNTHROID [Concomitant]
     Active Substance: LEVOTHYROXINE SODIUM
     Dosage: UNK
     Route: 064

REACTIONS (5)
  - Maternal exposure during pregnancy [Unknown]
  - Premature baby [Unknown]
  - Neonatal respiratory distress [Not Recovered/Not Resolved]
  - Pulmonary hypoplasia [Unknown]
  - Exposure via breast milk [Unknown]

NARRATIVE: CASE EVENT DATE: 20230511
